FAERS Safety Report 19739618 (Version 1)
Quarter: 2021Q3

REPORT INFORMATION
  Report Type: Report from Study
  Country: US (occurrence: US)
  Receive Date: 20210824
  Receipt Date: 20210824
  Transmission Date: 20211014
  Serious: Yes (Hospitalization)
  Sender: FDA-Public Use
  Company Number: US-EXELIXIS-CABO-21038077

PATIENT
  Sex: Male

DRUGS (8)
  1. COLESEVELAM HYDROCHLORIDE. [Concomitant]
     Active Substance: COLESEVELAM HYDROCHLORIDE
  2. CABOMETYX [Suspect]
     Active Substance: CABOZANTINIB S-MALATE
     Indication: RENAL CANCER
     Dosage: 40 MG, QD
     Route: 048
  3. BENZONATATE. [Concomitant]
     Active Substance: BENZONATATE
  4. LOVASTATIN. [Concomitant]
     Active Substance: LOVASTATIN
  5. MEMANTINE HCL [Concomitant]
     Active Substance: MEMANTINE
  6. LEVOTHYROXINE AND LIOTHYRONINE [Concomitant]
  7. PREDNISONE. [Concomitant]
     Active Substance: PREDNISONE
  8. TAMSULOSIN [Concomitant]
     Active Substance: TAMSULOSIN

REACTIONS (5)
  - Dysphonia [Not Recovered/Not Resolved]
  - Adverse drug reaction [Unknown]
  - Rhinorrhoea [Not Recovered/Not Resolved]
  - Incontinence [Not Recovered/Not Resolved]
  - Diarrhoea [Not Recovered/Not Resolved]
